FAERS Safety Report 8092956-3 (Version None)
Quarter: 2012Q1

REPORT INFORMATION
  Report Type: 
  Country: None (occurrence: None)
  Receive Date: 20120131
  Receipt Date: 20120116
  Transmission Date: 20120608
  Serious: Yes (Hospitalization)
  Sender: FDA-Public Use
  Company Number: AU-MYLANLABS-2012S1001472

PATIENT
  Age: 47 Year
  Sex: Male

DRUGS (15)
  1. BACLOFEN [Suspect]
     Indication: ALCOHOLISM
     Dosage: 80MG OVER 90MIN
     Route: 065
  2. BACLOFEN [Suspect]
     Dosage: WITH SUBSEQUENT DOSE ESCALATION
     Route: 065
  3. DIAZEPAM [Suspect]
     Indication: MULTIPLE DRUG OVERDOSE
     Route: 065
  4. VENLAFAXINE [Suspect]
     Dosage: 225MG XR
  5. BUPRENORPHINE [Suspect]
     Dosage: 32MG
     Route: 065
  6. BACLOFEN [Suspect]
     Indication: MULTIPLE DRUG OVERDOSE
     Dosage: 80MG OVER 90MIN
     Route: 065
  7. BUPRENORPHINE [Suspect]
     Indication: MULTIPLE DRUG OVERDOSE
     Route: 065
  8. BACLOFEN [Suspect]
     Dosage: WITH SUBSEQUENT DOSE ESCALATION
     Route: 065
  9. VENLAFAXINE [Suspect]
     Indication: DEPRESSION
  10. VENLAFAXINE [Suspect]
     Dosage: 225MG XR
  11. BUPRENORPHINE [Suspect]
     Indication: DRUG DEPENDENCE
     Route: 065
  12. VENLAFAXINE [Suspect]
     Indication: MULTIPLE DRUG OVERDOSE
  13. VENLAFAXINE [Suspect]
     Indication: ANTISOCIAL PERSONALITY DISORDER
  14. VENLAFAXINE [Suspect]
     Dosage: 225MG XR
  15. BUPRENORPHINE [Suspect]
     Dosage: 32MG
     Route: 065

REACTIONS (6)
  - DIZZINESS [None]
  - HYPERHIDROSIS [None]
  - MULTIPLE DRUG OVERDOSE [None]
  - ATAXIA [None]
  - DISORIENTATION [None]
  - SYNCOPE [None]
